FAERS Safety Report 20458420 (Version 2)
Quarter: 2022Q2

REPORT INFORMATION
  Report Type: Spontaneous
  Country: CA (occurrence: CA)
  Receive Date: 20220211
  Receipt Date: 20220401
  Transmission Date: 20220720
  Serious: Yes (Other)
  Sender: FDA-Public Use
  Company Number: CA-CELLTRION INC.-2020CA027823

PATIENT

DRUGS (6)
  1. INFLECTRA [Suspect]
     Active Substance: INFLIXIMAB-DYYB
     Indication: Colitis ulcerative
     Dosage: 300 MG, 2, 6 WEEKS, THEN EVERY 8 WEEKS
     Route: 042
     Dates: start: 20191031, end: 20200911
  2. INFLECTRA [Suspect]
     Active Substance: INFLIXIMAB-DYYB
     Dosage: 300 MG, 2, 6 WEEKS, THEN EVERY 8 WEEKS
     Route: 042
     Dates: start: 20200722
  3. INFLECTRA [Suspect]
     Active Substance: INFLIXIMAB-DYYB
     Dosage: 300 MG, 7 WEEKS AND 2 DAYS AFTER LAST INFUSION (PRESCRIBED INFUSION WAS EVERY 6 WEEKS)
     Route: 042
     Dates: start: 20200911
  4. INFLECTRA [Suspect]
     Active Substance: INFLIXIMAB-DYYB
     Dosage: 300 MG, EVERY 6 WEEKS
     Route: 042
     Dates: start: 20201023, end: 20210111
  5. INFLECTRA [Suspect]
     Active Substance: INFLIXIMAB-DYYB
     Dosage: 500 MG, EVERY 6 WEEKS
     Route: 042
     Dates: start: 20210226, end: 20210702
  6. PREDNISONE [Concomitant]
     Active Substance: PREDNISONE
     Dosage: UNK

REACTIONS (12)
  - Uveitis [Unknown]
  - Headache [Unknown]
  - Heart rate decreased [Recovering/Resolving]
  - Exposure during pregnancy [Unknown]
  - Jaundice [Unknown]
  - Pruritus [Unknown]
  - Inflammation [Unknown]
  - Drug level increased [Unknown]
  - Faecal calprotectin increased [Unknown]
  - Condition aggravated [Unknown]
  - Inappropriate schedule of product administration [Unknown]
  - Off label use [Unknown]

NARRATIVE: CASE EVENT DATE: 20200911
